FAERS Safety Report 17279648 (Version 1)
Quarter: 2020Q1

REPORT INFORMATION
  Report Type: Spontaneous
  Country: US (occurrence: US)
  Receive Date: 20200116
  Receipt Date: 20200116
  Transmission Date: 20200409
  Serious: Yes (Other)
  Sender: FDA-Public Use
  Company Number: US-CELGENEUS-USA-20200104584

PATIENT
  Sex: Male

DRUGS (1)
  1. INREBIC [Suspect]
     Active Substance: FEDRATINIB HYDROCHLORIDE
     Indication: ESSENTIAL THROMBOCYTHAEMIA
     Dosage: 400 MILLIGRAM
     Route: 048
     Dates: start: 20191023

REACTIONS (2)
  - Full blood count decreased [Unknown]
  - Nausea [Unknown]
